FAERS Safety Report 16334909 (Version 10)
Quarter: 2024Q3

REPORT INFORMATION
  Report Type: Report from Study
  Country: CA (occurrence: CA)
  Receive Date: 20190520
  Receipt Date: 20240919
  Transmission Date: 20241016
  Serious: Yes (Hospitalization, Other)
  Sender: NOVARTIS
  Company Number: PHHY2017CA165411

PATIENT
  Age: 43 Year
  Sex: Female
  Weight: 68.9 kg

DRUGS (5)
  1. COSENTYX [Suspect]
     Active Substance: SECUKINUMAB
     Indication: Psoriasis
     Dosage: 300 MG, Q4W
     Route: 058
     Dates: start: 20170426
  2. COSENTYX [Suspect]
     Active Substance: SECUKINUMAB
     Dosage: UNK
     Route: 065
     Dates: start: 20171224
  3. COSENTYX [Suspect]
     Active Substance: SECUKINUMAB
     Dosage: UNK
     Route: 065
     Dates: start: 20180124
  4. COSENTYX [Suspect]
     Active Substance: SECUKINUMAB
     Dosage: 300 MG, QMO
     Route: 058
     Dates: start: 20191024
  5. PROTOPIC [Concomitant]
     Active Substance: TACROLIMUS
     Indication: Product used for unknown indication
     Dosage: UNK
     Route: 065
     Dates: start: 201807

REACTIONS (28)
  - Cervical radiculopathy [Recovered/Resolved]
  - Intervertebral disc degeneration [Not Recovered/Not Resolved]
  - Cervical spinal stenosis [Not Recovered/Not Resolved]
  - Pancreatitis [Recovered/Resolved]
  - Pain [Recovering/Resolving]
  - Abdominal tenderness [Recovering/Resolving]
  - Fluid retention [Recovered/Resolved]
  - Dehydration [Recovering/Resolving]
  - Post procedural haematoma [Recovered/Resolved]
  - Anaemia [Recovered/Resolved]
  - Polyp [Recovered/Resolved]
  - Gallbladder polyp [Recovered/Resolved]
  - Procedural pain [Recovered/Resolved]
  - Abdominal discomfort [Recovered/Resolved]
  - Sleep disorder [Recovered/Resolved]
  - Procedural nausea [Recovered/Resolved]
  - Parotitis [Recovered/Resolved]
  - Swelling face [Recovered/Resolved]
  - Parotid gland enlargement [Recovering/Resolving]
  - Radiculopathy [Recovered/Resolved with Sequelae]
  - Sensory loss [Recovering/Resolving]
  - Sciatica [Recovering/Resolving]
  - Nerve compression [Recovering/Resolving]
  - Weight decreased [Unknown]
  - Fibromyalgia [Not Recovered/Not Resolved]
  - Mastocytoma [Recovered/Resolved]
  - Papule [Recovered/Resolved]
  - Hand deformity [Recovered/Resolved]

NARRATIVE: CASE EVENT DATE: 20170701
